FAERS Safety Report 6685291-9 (Version None)
Quarter: 2010Q2

REPORT INFORMATION
  Report Type: 
  Country: None (occurrence: None)
  Receive Date: 20100416
  Receipt Date: 20100415
  Transmission Date: 20101027
  Serious: Yes (Hospitalization)
  Sender: FDA-Public Use
  Company Number: AT-MERCK-1004AUT00007

PATIENT
  Age: 69 Year
  Sex: Female
  Weight: 110 kg

DRUGS (2)
  1. INVANZ [Suspect]
     Indication: URINARY TRACT INFECTION
     Route: 041
     Dates: start: 20100208, end: 20100210
  2. INVANZ [Suspect]
     Indication: PYREXIA
     Route: 041
     Dates: start: 20100208, end: 20100210

REACTIONS (1)
  - DRUG INEFFECTIVE [None]
